FAERS Safety Report 5606635-2 (Version None)
Quarter: 2008Q1

REPORT INFORMATION
  Report Type: 
  Country: None (occurrence: None)
  Receive Date: 20080129
  Receipt Date: 20080114
  Transmission Date: 20080703
  Serious: Yes (Other)
  Sender: FDA-Public Use
  Company Number: IT-ROCHE-541012

PATIENT
  Age: 46 Year
  Sex: Male

DRUGS (2)
  1. PEGASYS [Suspect]
     Indication: CHRONIC HEPATITIS
     Dosage: FORM REPORTED: VIAL
     Route: 058
     Dates: start: 20071019, end: 20071213
  2. COPEGUS [Concomitant]
     Indication: CHRONIC HEPATITIS
     Route: 048
     Dates: start: 20071019, end: 20071213

REACTIONS (4)
  - EXUDATIVE RETINOPATHY [None]
  - EYE HAEMORRHAGE [None]
  - MACULAR OEDEMA [None]
  - PAPILLOPHLEBITIS [None]
